FAERS Safety Report 16883414 (Version 1)
Quarter: 2019Q4

REPORT INFORMATION
  Report Type: Spontaneous
  Country: FR (occurrence: FR)
  Receive Date: 20191004
  Receipt Date: 20191004
  Transmission Date: 20200122
  Serious: Yes (Life-Threatening, Other)
  Sender: FDA-Public Use
  Company Number: FR-TEVA-2019-FR-1118054

PATIENT
  Age: 37 Year
  Sex: Male

DRUGS (8)
  1. PROPOFOL. [Suspect]
     Active Substance: PROPOFOL
     Indication: INDUCTION OF ANAESTHESIA
     Dosage: UNK UNK,UNK
     Route: 042
     Dates: start: 20171011, end: 20171011
  2. VANCOMYCIN HYDROCHLORIDE. [Suspect]
     Active Substance: VANCOMYCIN HYDROCHLORIDE
     Dosage: 1 G,UNK
     Route: 041
     Dates: start: 20171011, end: 20171011
  3. AZTREONAM. [Suspect]
     Active Substance: AZTREONAM
     Indication: ANTIBIOTIC PROPHYLAXIS
     Dosage: 1 G,UNK
     Route: 040
     Dates: start: 20171011, end: 20171011
  4. METHADONE [Concomitant]
     Active Substance: METHADONE HYDROCHLORIDE
     Indication: DRUG DEPENDENCE
  5. GENTAMICIN SULFATE. [Suspect]
     Active Substance: GENTAMICIN SULFATE
     Indication: ANTIBIOTIC PROPHYLAXIS
     Dosage: 400 MG,UNK
     Route: 040
     Dates: start: 20171011, end: 20171011
  6. PARACETAMOL [Suspect]
     Active Substance: ACETAMINOPHEN
     Indication: PAIN PROPHYLAXIS
     Dosage: 1 G,UNK
     Route: 042
     Dates: start: 20171011
  7. COCAINE [Concomitant]
     Active Substance: COCAINE
     Indication: PRODUCT USED FOR UNKNOWN INDICATION
  8. VANCOMYCIN HYDROCHLORIDE. [Suspect]
     Active Substance: VANCOMYCIN HYDROCHLORIDE
     Indication: ANTIBIOTIC PROPHYLAXIS
     Dosage: 800 MG,UNK
     Route: 041
     Dates: start: 20171011, end: 20171011

REACTIONS (8)
  - Tachycardia [Unknown]
  - Blood pressure diastolic decreased [Unknown]
  - Localised oedema [Recovering/Resolving]
  - Face oedema [Unknown]
  - Pallor [Unknown]
  - Urticaria [Unknown]
  - Anaphylactic shock [Recovered/Resolved]
  - Dyspnoea [Unknown]

NARRATIVE: CASE EVENT DATE: 20171011
